FAERS Safety Report 5908941-0 (Version None)
Quarter: 2008Q4

REPORT INFORMATION
  Report Type: 
  Country: None (occurrence: None)
  Receive Date: 20081006
  Receipt Date: 20080926
  Transmission Date: 20090506
  Serious: Yes (Hospitalization)
  Sender: FDA-Public Use
  Company Number: US-ASTRAZENECA-2008AC02576

PATIENT
  Age: 34 Year
  Sex: Female

DRUGS (1)
  1. ROSUVASTATIN [Suspect]

REACTIONS (1)
  - MYASTHENIA GRAVIS [None]
